FAERS Safety Report 5657988-0 (Version None)
Quarter: 2008Q1

REPORT INFORMATION
  Report Type: 
  Country: None (occurrence: None)
  Receive Date: 20080306
  Receipt Date: 20080229
  Transmission Date: 20080703
  Serious: Yes (Death, Other)
  Sender: FDA-Public Use
  Company Number: DSA_31416_2008

PATIENT
  Sex: Female
  Weight: 34.927 kg

DRUGS (2)
  1. ATIVAN [Suspect]
     Indication: ANXIETY
     Dosage: (0.25 MG BID ORAL)
     Route: 048
     Dates: start: 20080205, end: 20080208
  2. DORIBAX-DORIPENEM [Concomitant]

REACTIONS (5)
  - COMA [None]
  - PNEUMONIA [None]
  - PULMONARY FUNCTION TEST DECREASED [None]
  - RESPIRATORY DISORDER [None]
  - TOTAL LUNG CAPACITY DECREASED [None]
